FAERS Safety Report 13550600 (Version 1)
Quarter: 2017Q2

REPORT INFORMATION
  Report Type: Spontaneous
  Country: CN (occurrence: CN)
  Receive Date: 20170516
  Receipt Date: 20170516
  Transmission Date: 20170830
  Serious: Yes (Other)
  Sender: FDA-Public Use
  Company Number: CN-HERITAGE PHARMACEUTICALS-2017HTG00109

PATIENT
  Age: 67 Year
  Sex: Male

DRUGS (1)
  1. ACYCLOVIR. [Suspect]
     Active Substance: ACYCLOVIR
     Indication: VARICELLA ZOSTER VIRUS INFECTION
     Dosage: 5 MG KG^-1 ^8 HOURLY^
     Route: 042

REACTIONS (1)
  - Immune thrombocytopenic purpura [Recovering/Resolving]
